FAERS Safety Report 21817561 (Version 1)
Quarter: 2023Q1

REPORT INFORMATION
  Report Type: Spontaneous
  Country: US (occurrence: None)
  Receive Date: 20230104
  Receipt Date: 20230104
  Transmission Date: 20230418
  Serious: Yes (Hospitalization)
  Sender: FDA-Public Use
  Company Number: None

PATIENT
  Age: 29 Year
  Sex: Female
  Weight: 111 kg

DRUGS (15)
  1. ENOXAPARIN [Suspect]
     Active Substance: ENOXAPARIN
     Indication: Deep vein thrombosis
     Dosage: FREQUENCY : TWICE A DAY;?
     Route: 058
     Dates: start: 20221213, end: 20221216
  2. acetaminophen 1000 mg tablet [Concomitant]
     Dates: start: 20221212, end: 20221214
  3. azithromycin 500 mg in 250 ml NS IVPB [Concomitant]
     Dates: start: 20221212, end: 20221212
  4. fentanyl 25 mcg injection [Concomitant]
     Dates: start: 20221212, end: 20221212
  5. Lactated ringers 500 ml [Concomitant]
     Dates: start: 20221212, end: 20221212
  6. levothyroxine 75 mg tablet [Concomitant]
  7. rho(D) immune globulin (RhoGAM) injection syringe 300 mcg [Concomitant]
     Dates: start: 20221213, end: 20221213
  8. sodium citrate-citric acid oral solution [Concomitant]
     Dates: start: 20221212, end: 20221212
  9. fentaNYL 3 mcg/mL+bupivacaine 0.1% [Concomitant]
     Dates: start: 20221212, end: 20221212
  10. oxytocin in lactated ringers (PITOCIN) 30 unit/500 mL infusion [Concomitant]
     Dates: start: 20221212, end: 20221212
  11. calcium carbonate (TUMS) tablet 1,000 mg [Concomitant]
     Dates: start: 20221212, end: 20221212
  12. docusate sodium (COLACE) capsule 100 mg [Concomitant]
     Dates: start: 20221212
  13. epidural bolus - hand bolus bupivacaine 0.125 % 10 mL [Concomitant]
     Dates: start: 20221212
  14. misoPROStol (CYTOTEC) tablet 25 mcg [Concomitant]
     Dates: start: 20221211, end: 20221214
  15. oxyCODONE (ROXICODONE) tablet 5 mg [Concomitant]
     Dates: start: 20221213

REACTIONS (9)
  - Caesarean section [None]
  - Exposure during pregnancy [None]
  - Vaginal discharge [None]
  - Abdominal pain [None]
  - Abdominal wall haematoma [None]
  - Deep dissecting haematoma [None]
  - Pyelocaliectasis [None]
  - Nephrolithiasis [None]
  - Urethritis noninfective [None]

NARRATIVE: CASE EVENT DATE: 20221216
